FAERS Safety Report 8839926 (Version 5)
Quarter: 2013Q3

REPORT INFORMATION
  Report Type: Spontaneous
  Country: IE (occurrence: None)
  Receive Date: 20121011
  Receipt Date: 20130726
  Transmission Date: 20140515
  Serious: Yes (Hospitalization)
  Sender: FDA-Public Use
  Company Number: FK201202993

PATIENT
  Age: 51 Year
  Sex: Female

DRUGS (15)
  1. CEFTRIAXON [Suspect]
     Indication: PRODUCT USED FOR UNKNOWN INDICATION
     Route: 042
  2. MEROPENEM [Suspect]
     Indication: PRODUCT USED FOR UNKNOWN INDICATION
  3. TELAPREVIR [Suspect]
     Indication: PRODUCT USED FOR UNKNOWN INDICATION
     Route: 048
     Dates: start: 20120704
  4. RIBAVIRIN (RIBAVIRIN) [Concomitant]
  5. LAMIVUDINE  (LAMIVUDINE) [Concomitant]
  6. EFAVIRENZ (EFAVIRENZ) [Concomitant]
  7. HYOSCINE (HYOSCINE) [Concomitant]
  8. BUTYLBROMIDE (HYOSCINE BUTYLBROMIDE) [Concomitant]
  9. PARACETAMOL (PARACETAMOL) [Concomitant]
  10. ACETYLCYSTEINE (ACETYLCYSTEINE) [Concomitant]
  11. SODIUM BICARBONATE (SODIUM BICARBONATE) [Concomitant]
  12. NYSTATIN (NYSTATIN) [Concomitant]
  13. EPOETIN ALFA [Concomitant]
  14. OMEPRAZOLE (OMEPRAZOLE) [Concomitant]
  15. PEGINTERFERON ALFA-2B (PEGINTERFERON ALFA-2B) [Concomitant]

REACTIONS (7)
  - Anaemia [None]
  - Escherichia bacteraemia [None]
  - Abdominal pain upper [None]
  - Pyelonephritis [None]
  - Sepsis [None]
  - Thrombocytopenia [None]
  - Blood bilirubin increased [None]
